FAERS Safety Report 11335060 (Version 1)
Quarter: 2015Q3

REPORT INFORMATION
  Report Type: Spontaneous
  Country: US (occurrence: US)
  Receive Date: 20150804
  Receipt Date: 20150804
  Transmission Date: 20151125
  Serious: No
  Sender: FDA-Public Use
  Company Number: US-PFIZER INC-2015256714

PATIENT
  Sex: Female

DRUGS (1)
  1. LYRICA [Suspect]
     Active Substance: PREGABALIN
     Dosage: OPENING THE CAPSULE OF THE 50MG AND TAKING HALF OF THE CONTENTS AT A TIME.
     Dates: start: 201507

REACTIONS (8)
  - Hangover [Unknown]
  - Intentional product misuse [Unknown]
  - Somnolence [Unknown]
  - Mobility decreased [Unknown]
  - Diarrhoea [Unknown]
  - Thinking abnormal [Unknown]
  - Dizziness [Unknown]
  - Depression [Unknown]
